FAERS Safety Report 5153254-0 (Version None)
Quarter: 2006Q4

REPORT INFORMATION
  Report Type: 
  Country: None (occurrence: None)
  Receive Date: 20061117
  Receipt Date: 20060601
  Transmission Date: 20070319
  Serious: Yes (Death, Hospitalization)
  Sender: FDA-Public Use
  Company Number: TW-ROCHE-469772

PATIENT
  Age: 59 Year
  Sex: Male

DRUGS (10)
  1. ROCEPHIN [Suspect]
     Route: 065
     Dates: start: 20040730, end: 20040731
  2. PENICILLIN G [Suspect]
     Dosage: DOSAGE REPORTED AS 1.5 MU Q6H.
     Route: 065
     Dates: start: 20040730, end: 20040731
  3. ISONIAZID [Suspect]
     Route: 065
     Dates: start: 20040720, end: 20040821
  4. RIFAMPIN [Suspect]
     Route: 065
     Dates: start: 20040720, end: 20040821
  5. RIFATER [Concomitant]
     Dosage: REPORTED AS RIFATER (RIFAMPIN 120 MG + ISONIAZID 50 MG + PYRAZINAMIDE 300 MG). ON 10 JUL 2004 (EST.+
     Dates: start: 20040626
  6. ETHAMBUTOL HYDROCHLORIDE [Concomitant]
     Dates: start: 20040626
  7. CEFUROXIME [Concomitant]
     Dates: start: 20040720, end: 20040723
  8. CEFAZOLIN [Concomitant]
     Dates: start: 20040729, end: 20040730
  9. AUGMENTIN '125' [Concomitant]
     Route: 042
     Dates: start: 20040623, end: 20040630
  10. AUGMENTIN '125' [Concomitant]
     Dosage: INDICATION REPORTED AS PTB.
     Route: 048
     Dates: start: 20040630

REACTIONS (7)
  - COLLAPSE OF LUNG [None]
  - CONFUSIONAL STATE [None]
  - HYPOVOLAEMIC SHOCK [None]
  - RESPIRATORY FAILURE [None]
  - SEPTIC SHOCK [None]
  - STEVENS-JOHNSON SYNDROME [None]
  - TOXIC EPIDERMAL NECROLYSIS [None]
